FAERS Safety Report 8516158-9 (Version None)
Quarter: 2012Q3

REPORT INFORMATION
  Report Type: 
  Country: None (occurrence: None)
  Receive Date: 20120717
  Receipt Date: 20120712
  Transmission Date: 20120928
  Serious: Yes (Hospitalization)
  Sender: FDA-Public Use
  Company Number: CH-BAYER-2012-069583

PATIENT
  Sex: Male

DRUGS (6)
  1. AUGMENTIN '500' [Concomitant]
     Indication: RESPIRATORY FAILURE
  2. LABETALOL HCL [Concomitant]
     Indication: HYPERTENSION
     Route: 042
  3. HYPNOTICS AND SEDATIVES [Concomitant]
     Indication: RESPIRATORY FAILURE
  4. ASPIRIN [Suspect]
     Dosage: 100 MG, QD
  5. AUGMENTIN '500' [Concomitant]
     Indication: PNEUMONITIS
  6. HYPNOTICS AND SEDATIVES [Concomitant]
     Indication: PNEUMONITIS

REACTIONS (2)
  - CEREBRAL HAEMORRHAGE [None]
  - HEMIPARESIS [None]
